FAERS Safety Report 25663900 (Version 1)
Quarter: 2025Q3

REPORT INFORMATION
  Report Type: Spontaneous
  Country: GB (occurrence: GB)
  Receive Date: 20250811
  Receipt Date: 20250811
  Transmission Date: 20251021
  Serious: Yes (Other)
  Sender: SANDOZ
  Company Number: None

PATIENT
  Sex: Female

DRUGS (2)
  1. METRONIDAZOLE [Suspect]
     Active Substance: METRONIDAZOLE
     Indication: Product used for unknown indication
     Route: 065
     Dates: start: 20250408, end: 20250408
  2. NYSTATIN [Suspect]
     Active Substance: NYSTATIN
     Indication: Product used for unknown indication
     Route: 065
     Dates: start: 20250408, end: 20250408

REACTIONS (3)
  - Migraine with aura [Not Recovered/Not Resolved]
  - Musculoskeletal stiffness [Unknown]
  - Malaise [Unknown]

NARRATIVE: CASE EVENT DATE: 20250508
